FAERS Safety Report 5732023-4 (Version None)
Quarter: 2008Q2

REPORT INFORMATION
  Report Type: 
  Country: None (occurrence: None)
  Receive Date: 20080508
  Receipt Date: 20080408
  Transmission Date: 20081010
  Serious: Yes (Other)
  Sender: FDA-Public Use
  Company Number: GB-JNJFOC-20080402815

PATIENT
  Age: 7 Decade
  Sex: Female

DRUGS (3)
  1. DAKTACORT [Suspect]
     Route: 061
  2. DAKTACORT [Suspect]
     Indication: LOCAL ANTIFUNGAL TREATMENT
     Route: 061
  3. WARFARIN SODIUM [Interacting]
     Indication: DRUG USE FOR UNKNOWN INDICATION
     Route: 065

REACTIONS (2)
  - DRUG INTERACTION [None]
  - INTERNATIONAL NORMALISED RATIO INCREASED [None]
